FAERS Safety Report 25788134 (Version 1)
Quarter: 2025Q3

REPORT INFORMATION
  Report Type: Spontaneous
  Country: US (occurrence: US)
  Receive Date: 20250910
  Receipt Date: 20250910
  Transmission Date: 20251021
  Serious: Yes (Hospitalization, Other)
  Sender: LGM PHARMA SOLUTIONS, LLC
  Company Number: US-LGM Pharma Solutions, LLC-2184228

PATIENT

DRUGS (1)
  1. MECAMYLAMINE HYDROCHLORIDE [Suspect]
     Active Substance: MECAMYLAMINE HYDROCHLORIDE
     Indication: Product used for unknown indication

REACTIONS (5)
  - Abdominal distension [Unknown]
  - Product administration interrupted [Unknown]
  - Gastrointestinal disorder [Unknown]
  - Diarrhoea [Unknown]
  - Constipation [Unknown]
